FAERS Safety Report 5199603-9 (Version None)
Quarter: 2007Q1

REPORT INFORMATION
  Report Type: 
  Country: None (occurrence: None)
  Receive Date: 20070103
  Receipt Date: 20070103
  Transmission Date: 20070707
  Serious: Yes (Life-Threatening, Hospitalization)
  Sender: FDA-Public Use
  Company Number: None

PATIENT
  Age: 33 Year
  Sex: Female
  Weight: 68.4932 kg

DRUGS (1)
  1. NUVARING [Suspect]
     Indication: CONTRACEPTION
     Dosage: 1 RING 1X MONTHLY VAG
     Route: 067
     Dates: start: 20030501, end: 20061204

REACTIONS (4)
  - DEEP VEIN THROMBOSIS [None]
  - PAIN [None]
  - PULMONARY EMBOLISM [None]
  - VEIN DISORDER [None]
